FAERS Safety Report 8841556 (Version 4)
Quarter: 2012Q4

REPORT INFORMATION
  Report Type: 
  Country: US (occurrence: US)
  Receive Date: 20121016
  Receipt Date: 20121116
  Transmission Date: 20130627
  Serious: No
  Sender: FDA-Public Use
  Company Number: US-BIOGENIDEC-2012BI045073

PATIENT
  Age: 52 Year
  Sex: Female

DRUGS (3)
  1. TYSABRI [Suspect]
     Indication: MULTIPLE SCLEROSIS
     Route: 042
     Dates: start: 20070904, end: 20120912
  2. PERCOCET [Concomitant]
  3. VIT D [Concomitant]
     Dosage: Dose unit:5000

REACTIONS (1)
  - Multiple sclerosis [Not Recovered/Not Resolved]
